FAERS Safety Report 14483024 (Version 4)
Quarter: 2018Q2

REPORT INFORMATION
  Report Type: Spontaneous
  Country: US (occurrence: US)
  Receive Date: 20180203
  Receipt Date: 20180418
  Transmission Date: 20180711
  Serious: No
  Sender: FDA-Public Use
  Company Number: US-009507513-1802USA000801

PATIENT
  Sex: Female
  Weight: 121.1 kg

DRUGS (1)
  1. NEXPLANON [Suspect]
     Active Substance: ETONOGESTREL
     Dosage: 1 DF, LEFT ARM
     Route: 059
     Dates: start: 20170808

REACTIONS (5)
  - Adverse event [Unknown]
  - Discomfort [Unknown]
  - Device kink [Not Recovered/Not Resolved]
  - Device breakage [Not Recovered/Not Resolved]
  - Medical device monitoring error [Unknown]
